FAERS Safety Report 25958675 (Version 1)
Quarter: 2025Q4

REPORT INFORMATION
  Report Type: Spontaneous
  Country: ZA (occurrence: ZA)
  Receive Date: 20251024
  Receipt Date: 20251024
  Transmission Date: 20260117
  Serious: Yes (Other)
  Sender: ORGANON
  Company Number: ZA-ORGANON-O2510ZAF001634

PATIENT
  Sex: Male

DRUGS (1)
  1. CELESTONE SOLUSPAN [Suspect]
     Active Substance: BETAMETHASONE ACETATE\BETAMETHASONE SODIUM PHOSPHATE
     Dosage: UNK, WAS INJECTED A FEW YEARS AGO BY AN ORTHOPOD INTO A TRIGGER FINGER

REACTIONS (1)
  - Joint capsule rupture [Unknown]
